FAERS Safety Report 7946905-6 (Version None)
Quarter: 2011Q4

REPORT INFORMATION
  Report Type: 
  Country: None (occurrence: None)
  Receive Date: 20111129
  Receipt Date: 20111115
  Transmission Date: 20120403
  Serious: Yes (Other)
  Sender: FDA-Public Use
  Company Number: KR-ASTRAZENECA-2011SE69227

PATIENT
  Age: 36 Year
  Sex: Male

DRUGS (14)
  1. MEROPENEM [Suspect]
     Route: 042
  2. ANTIPLATELET [Suspect]
  3. CEFTRIAXONE [Suspect]
  4. ANTICONVULSANT [Suspect]
  5. TIZANIDINE HCL [Suspect]
  6. CIPROFLOXACIN [Suspect]
  7. HERBAL NERVE TONIC LIQUID [Suspect]
  8. METRONIDAZOLE [Suspect]
  9. ANTIBIOTIC [Suspect]
  10. CLINDAMYCIN [Suspect]
  11. DIURETIC [Suspect]
  12. IMIPENEM [Suspect]
  13. VANCOMYCIN [Suspect]
  14. CLONAZEPAM [Suspect]

REACTIONS (1)
  - LIVER INJURY [None]
